FAERS Safety Report 21502166 (Version 2)
Quarter: 2022Q4

REPORT INFORMATION
  Report Type: Spontaneous
  Country: FR (occurrence: FR)
  Receive Date: 20221025
  Receipt Date: 20221115
  Transmission Date: 20230113
  Serious: Yes (Life-Threatening)
  Sender: FDA-Public Use
  Company Number: None

PATIENT
  Age: 57 Year
  Sex: Female
  Weight: 83 kg

DRUGS (8)
  1. PROPOFOL [Suspect]
     Active Substance: PROPOFOL
     Indication: Sedative therapy
     Dosage: ?MULSION INJECTABLE ET POUR PERFUSION  // EMULSION FOR INJECTION/INFUSION
     Route: 042
     Dates: start: 20220929
  2. MIDAZOLAM HYDROCHLORIDE [Suspect]
     Active Substance: MIDAZOLAM HYDROCHLORIDE
     Indication: Sedative therapy
     Dosage: AMP IV
     Route: 040
     Dates: start: 20220929
  3. CISATRACURIUM BESYLATE [Suspect]
     Active Substance: CISATRACURIUM BESYLATE
     Indication: Neuromuscular blocking therapy
     Route: 042
     Dates: start: 20220929
  4. SUFENTANIL CITRATE [Suspect]
     Active Substance: SUFENTANIL CITRATE
     Indication: Sedative therapy
     Route: 042
     Dates: start: 20220929
  5. PANTOPRAZOLE SODIUM [Concomitant]
     Active Substance: PANTOPRAZOLE SODIUM
  6. CEFAZOLINE HOSPIRA 2 g, [Concomitant]
  7. SOLUMEDROL 1 g, [Concomitant]
  8. SOLUMEDROL 1 g, [Concomitant]
     Dosage: POWDER AND SOLVENT FOR SOLUTION FOR INJECTION/INFUSION

REACTIONS (2)
  - Torsade de pointes [Recovered/Resolved]
  - Cardiac arrest [Recovered/Resolved]

NARRATIVE: CASE EVENT DATE: 20221004
